FAERS Safety Report 5116967-2 (Version None)
Quarter: 2006Q3

REPORT INFORMATION
  Report Type: 
  Country: None (occurrence: None)
  Receive Date: 20060922
  Receipt Date: 20060919
  Transmission Date: 20061208
  Serious: Yes (Life-Threatening, Hospitalization)
  Sender: FDA-Public Use
  Company Number: 2006-143534-NL

PATIENT
  Age: 74 Year
  Sex: Male

DRUGS (14)
  1. DANAPAROID SODIUM [Suspect]
     Dosage: INTRAVENOUS DRIP
     Route: 041
     Dates: start: 20060119, end: 20060207
  2. ANTITHROMBIN III [Concomitant]
  3. IMMUNE GLOBULIN INTRAVENOUS (HUMAN) [Concomitant]
  4. MENATETRENONE [Concomitant]
  5. HYDROCORTISONE SODIUM PHOSPHATE [Concomitant]
  6. GABEXATE MESILATE [Concomitant]
  7. CLINDAMYCIN [Concomitant]
  8. CIPROFLOXACIN HYDROCHLORIDE [Concomitant]
  9. TEICOPLANIN [Concomitant]
  10. SIVELESTAT [Concomitant]
  11. IMIPENEM [Concomitant]
  12. CEFMETAZOLE SODIUM [Concomitant]
  13. AMPICILLIN SODIUM [Concomitant]
  14. VANCOMYCIN HYDROCHLORIDE [Concomitant]

REACTIONS (8)
  - ANAEMIA POSTOPERATIVE [None]
  - CONDITION AGGRAVATED [None]
  - DISSEMINATED INTRAVASCULAR COAGULATION [None]
  - HAEMATURIA [None]
  - HEPATIC FUNCTION ABNORMAL [None]
  - MALNUTRITION [None]
  - POSTOPERATIVE INFECTION [None]
  - RENAL IMPAIRMENT [None]
